FAERS Safety Report 21236344 (Version 3)
Quarter: 2022Q3

REPORT INFORMATION
  Report Type: Spontaneous
  Country: DE (occurrence: DE)
  Receive Date: 20220822
  Receipt Date: 20220930
  Transmission Date: 20221027
  Serious: Yes (Hospitalization)
  Sender: FDA-Public Use
  Company Number: DE-MYLANLABS-2022M1083949

PATIENT
  Sex: Female

DRUGS (10)
  1. CIMZIA [Suspect]
     Active Substance: CERTOLIZUMAB PEGOL
     Indication: Rheumatoid arthritis
     Dosage: 400 MILLIGRAM
     Dates: start: 201702, end: 2017
  2. CIMZIA [Suspect]
     Active Substance: CERTOLIZUMAB PEGOL
     Dosage: 200 MILLIGRAM
     Dates: start: 20170502, end: 201705
  3. METHOTREXATE [Suspect]
     Active Substance: METHOTREXATE
     Indication: Rheumatoid arthritis
     Dosage: 15 MILLIGRAM
     Dates: start: 20170801
  4. ERELZI [Suspect]
     Active Substance: ETANERCEPT-SZZS
     Indication: Rheumatoid arthritis
     Dosage: 50 MILLIGRAM
     Dates: start: 202109, end: 202201
  5. HYDROXYCHLOROQUINE [Suspect]
     Active Substance: HYDROXYCHLOROQUINE
     Indication: Rheumatoid arthritis
     Dosage: 200 MILLIGRAM
     Dates: start: 20180817
  6. HYDROXYCHLOROQUINE [Suspect]
     Active Substance: HYDROXYCHLOROQUINE
     Dosage: 200 MILLIGRAM
     Dates: start: 20190123
  7. SULFASALAZINE [Suspect]
     Active Substance: SULFASALAZINE
     Indication: Rheumatoid arthritis
     Dosage: 500 MILLIGRAM
     Dates: start: 20180130
  8. BARICITINIB [Suspect]
     Active Substance: BARICITINIB
     Indication: Rheumatoid arthritis
     Dosage: 2 MILLIGRAM
     Dates: start: 201912, end: 202010
  9. TOCILIZUMAB [Suspect]
     Active Substance: TOCILIZUMAB
     Indication: Product used for unknown indication
     Dosage: 162 MILLIGRAM
     Dates: start: 201705, end: 201706
  10. OLUMIANT [Suspect]
     Active Substance: BARICITINIB
     Indication: Rheumatoid arthritis
     Dosage: 2 MILLIGRAM
     Dates: start: 201912, end: 202010

REACTIONS (8)
  - Rheumatoid arthritis [Recovered/Resolved]
  - Hypertensive crisis [Recovered/Resolved]
  - Chronic obstructive pulmonary disease [Unknown]
  - Radiculopathy [Recovered/Resolved]
  - Intervertebral disc protrusion [Unknown]
  - Chondrocalcinosis pyrophosphate [Unknown]
  - Dyspnoea [Unknown]
  - Rash [Unknown]

NARRATIVE: CASE EVENT DATE: 20171125
